FAERS Safety Report 7503887-9 (Version None)
Quarter: 2011Q2

REPORT INFORMATION
  Report Type: 
  Country: None (occurrence: None)
  Receive Date: 20110525
  Receipt Date: 20110412
  Transmission Date: 20111010
  Serious: Yes (Life-Threatening, Hospitalization)
  Sender: FDA-Public Use
  Company Number: US-BAYER-201037968NA

PATIENT
  Age: 15 Year
  Sex: Female
  Weight: 68 kg

DRUGS (11)
  1. PRILOSEC [Concomitant]
  2. ZYRTEC [Concomitant]
  3. MIRALAX [Concomitant]
  4. IBUPROFEN [Concomitant]
  5. DROSPIRENONE AND ETHINYL ESTRADIOL [Suspect]
     Indication: MENSTRUATION IRREGULAR
     Dosage: UNK UNK, UNK
     Route: 048
     Dates: start: 20080101, end: 20090101
  6. SYNTHROID [Concomitant]
  7. SINGULAIR [Concomitant]
  8. GLUCOPHAGE [Concomitant]
  9. LUVOX [Concomitant]
  10. ENALAPRIL MALEATE [Concomitant]
  11. YASMIN [Suspect]
     Indication: MENSTRUATION IRREGULAR
     Dosage: UNK UNK, UNK
     Route: 048
     Dates: start: 20020101, end: 20080101

REACTIONS (5)
  - INJURY [None]
  - ABDOMINAL DISCOMFORT [None]
  - VOMITING [None]
  - CHOLELITHIASIS [None]
  - GASTRIC DISORDER [None]
